FAERS Safety Report 10200993 (Version 1)
Quarter: 2014Q2

REPORT INFORMATION
  Report Type: Spontaneous
  Country: BR (occurrence: BR)
  Receive Date: 20140528
  Receipt Date: 20140528
  Transmission Date: 20141212
  Serious: Yes (Other)
  Sender: FDA-Public Use
  Company Number: PHHY2014BR063490

PATIENT
  Age: 67 Year
  Sex: Male
  Weight: 74 kg

DRUGS (10)
  1. DIOVAN HCT [Suspect]
     Indication: HYPERTENSION
     Dosage: 1 DF (VALS 160 MG / HYDR 12.5 MG), QD (A DAY IN THE MORNING)
     Route: 048
     Dates: start: 201105
  2. CRESTOR [Concomitant]
     Indication: BLOOD CHOLESTEROL ABNORMAL
     Dosage: 1 DF, A DAY
     Route: 048
  3. BRILINTA [Concomitant]
     Indication: CARDIAC DISORDER
     Dosage: 2 DF, BID
     Route: 048
     Dates: start: 201309
  4. MONOCORDIL [Concomitant]
     Indication: CARDIAC DISORDER
     Dosage: 2 DF, BID
     Route: 048
     Dates: start: 201310
  5. ASPIRINA PREVENT [Concomitant]
     Indication: COAGULOPATHY
     Dosage: 1 DF, A DAY
     Route: 048
     Dates: start: 201309
  6. SELOZOK [Concomitant]
     Indication: CARDIAC DISORDER
     Dosage: UNK UKN, QD
     Route: 048
     Dates: start: 201310
  7. GLIMEPIRIDE [Concomitant]
     Indication: DIABETES MELLITUS
     Dosage: 2 DF, QD
     Route: 048
     Dates: start: 2010
  8. ACTOS [Concomitant]
     Indication: DIABETES MELLITUS
     Dosage: 1 DF, A DAY
     Route: 048
     Dates: start: 2010
  9. GALVUS [Concomitant]
     Indication: DIABETES MELLITUS
     Dosage: 2 DF, BID
     Route: 048
     Dates: start: 2010
  10. INSULIN [Concomitant]
     Indication: DIABETES MELLITUS
     Dosage: UNK UKN, QD
     Route: 058
     Dates: start: 2010

REACTIONS (4)
  - Infarction [Recovered/Resolved]
  - Cerebrovascular accident [Not Recovered/Not Resolved]
  - Blindness unilateral [Not Recovered/Not Resolved]
  - Eye disorder [Not Recovered/Not Resolved]
